FAERS Safety Report 15821219 (Version 1)
Quarter: 2019Q1

REPORT INFORMATION
  Report Type: Report from Study
  Country: PA (occurrence: PA)
  Receive Date: 20190114
  Receipt Date: 20190114
  Transmission Date: 20190417
  Serious: Yes (Other)
  Sender: FDA-Public Use
  Company Number: PA-SA-2019SA005089

PATIENT
  Age: 76 Year
  Sex: Female

DRUGS (1)
  1. IRBESARTAN. [Suspect]
     Active Substance: IRBESARTAN
     Dosage: 1 DF, QD (1 ORAL TABLET OF 300 MG OF IRBESARTAN EVERY 24 HOURS)
     Route: 048
     Dates: start: 2001

REACTIONS (2)
  - Facial paralysis [Recovered/Resolved with Sequelae]
  - Speech disorder [Recovered/Resolved with Sequelae]

NARRATIVE: CASE EVENT DATE: 2001
